FAERS Safety Report 7305817-1 (Version None)
Quarter: 2011Q1

REPORT INFORMATION
  Report Type: 
  Country: None (occurrence: None)
  Receive Date: 20110222
  Receipt Date: 20110215
  Transmission Date: 20110831
  Serious: Yes (Death)
  Sender: FDA-Public Use
  Company Number: CH-ROCHE-755446

PATIENT
  Age: 58 Year
  Sex: Male
  Weight: 76 kg

DRUGS (3)
  1. CISPLATIN [Concomitant]
     Indication: NON-SMALL CELL LUNG CANCER
     Dosage: RECEIVED TOTAL FIVE THERAPY CYCLES.
  2. AVASTIN [Suspect]
     Indication: NON-SMALL CELL LUNG CANCER
     Route: 042
     Dates: start: 20100131, end: 20100628
  3. PEMETREXED [Concomitant]
     Indication: NON-SMALL CELL LUNG CANCER
     Dosage: RECEIVED TOTAL FIVE THERAPY CYCLES.

REACTIONS (4)
  - NEOPLASM MALIGNANT [None]
  - NON-SMALL CELL LUNG CANCER [None]
  - LUNG NEOPLASM MALIGNANT [None]
  - REBOUND EFFECT [None]
